FAERS Safety Report 4510705-X (Version None)
Quarter: 2004Q4

REPORT INFORMATION
  Report Type: 
  Country: None (occurrence: None)
  Receive Date: 20041025
  Receipt Date: 20040316
  Transmission Date: 20050328
  Serious: Yes (Other)
  Sender: FDA-Public Use
  Company Number: US-JNJFOC-20040202926

PATIENT
  Age: 52 Year
  Sex: Female
  Weight: 88.905 kg

DRUGS (8)
  1. REMICADE [Suspect]
     Indication: CROHN'S DISEASE
     Dosage: 650 MG, 1 IN 8 WEEK, INTRAVENOUS
     Route: 042
     Dates: start: 20040101, end: 20040101
  2. ACETAMINOPHEN [Concomitant]
  3. WELLBUTRIN [Concomitant]
  4. ASACOL [Concomitant]
  5. CALCIUM CARBONATE (CALCIUM CARBONATE) [Concomitant]
  6. LANSOPRAZOLE [Concomitant]
  7. MERCAPTOPURINE [Concomitant]
  8. SYNTHROID [Concomitant]

REACTIONS (1)
  - BREAST CANCER [None]
